FAERS Safety Report 17864590 (Version 1)
Quarter: 2020Q2

REPORT INFORMATION
  Report Type: Spontaneous
  Country: DE (occurrence: DE)
  Receive Date: 20200605
  Receipt Date: 20200605
  Transmission Date: 20200714
  Serious: Yes (Life-Threatening, Hospitalization)
  Sender: FDA-Public Use
  Company Number: DE-ACCORD-184091

PATIENT
  Age: 70 Year
  Sex: Male
  Weight: 100 kg

DRUGS (10)
  1. GINKGO BILOBA [Concomitant]
     Active Substance: GINKGO
     Dosage: 200 MG 1X1 EVERY 2 DAYS
     Route: 065
  2. CANDESARTAN. [Concomitant]
     Active Substance: CANDESARTAN
     Dosage: 1-0-0
     Route: 065
  3. ALFUZOSIN [Concomitant]
     Active Substance: ALFUZOSIN
     Dosage: 1-0-0
     Route: 065
  4. TIMOLOL. [Interacting]
     Active Substance: TIMOLOL
     Indication: PRODUCT USED FOR UNKNOWN INDICATION
     Dosage: 0-0-1
     Route: 065
  5. ATROPINE. [Suspect]
     Active Substance: ATROPINE
     Indication: BRADYCARDIA
     Route: 065
  6. RIVAROXABAN [Concomitant]
     Active Substance: RIVAROXABAN
     Dosage: 1-0-0
     Route: 065
  7. TAFLUPROST [Concomitant]
     Active Substance: TAFLUPROST
     Dosage: 15 MICROG/ML 0-0-1
     Route: 065
  8. AMLODIPINE [Suspect]
     Active Substance: AMLODIPINE BESYLATE
     Indication: PRODUCT USED FOR UNKNOWN INDICATION
     Dosage: 1-0-0
     Route: 065
  9. BISOPROLOL [Interacting]
     Active Substance: BISOPROLOL
     Indication: PRODUCT USED FOR UNKNOWN INDICATION
     Dosage: 5 MILLIGRAM DAILY, 1-0-0
     Route: 065
  10. DRONEDARONE [Interacting]
     Active Substance: DRONEDARONE
     Indication: ATRIAL FIBRILLATION
     Dosage: 800 MG DAILY
     Route: 065

REACTIONS (5)
  - Drug interaction [Unknown]
  - Drug ineffective [Unknown]
  - Atrioventricular block second degree [Recovered/Resolved]
  - Atrioventricular block [Recovered/Resolved]
  - Cardiovascular insufficiency [Recovered/Resolved]
